FAERS Safety Report 5557310-4 (Version None)
Quarter: 2007Q4

REPORT INFORMATION
  Report Type: 
  Country: None (occurrence: None)
  Receive Date: 20071214
  Receipt Date: 20070918
  Transmission Date: 20080405
  Serious: No
  Sender: FDA-Public Use
  Company Number: US-AMGEN-KDL243954

PATIENT
  Sex: Female

DRUGS (2)
  1. ENBREL [Suspect]
     Indication: RHEUMATOID ARTHRITIS
     Route: 058
     Dates: start: 20030901
  2. METHOTREXATE [Concomitant]
     Dates: start: 20030101

REACTIONS (8)
  - CONTUSION [None]
  - DIZZINESS [None]
  - DRUG INEFFECTIVE [None]
  - EXOSTOSIS [None]
  - FALL [None]
  - INCISION SITE INFECTION [None]
  - INFECTION [None]
  - POLLAKIURIA [None]
